FAERS Safety Report 15542531 (Version 2)
Quarter: 2018Q4

REPORT INFORMATION
  Report Type: Spontaneous
  Country: US (occurrence: US)
  Receive Date: 20181023
  Receipt Date: 20181107
  Transmission Date: 20190205
  Serious: Yes (Disabling)
  Sender: FDA-Public Use
  Company Number: US-ACTELION-A-US2018-180419

PATIENT
  Age: 71 Year
  Sex: Female

DRUGS (1)
  1. OPSUMIT [Suspect]
     Active Substance: MACITENTAN
     Indication: PULMONARY ARTERIAL HYPERTENSION
     Dosage: 10 MG, QD
     Route: 048
     Dates: start: 201810, end: 20181030

REACTIONS (7)
  - Eye swelling [Not Recovered/Not Resolved]
  - Insomnia [Unknown]
  - Fluid retention [Not Recovered/Not Resolved]
  - Abdominal distension [Not Recovered/Not Resolved]
  - Swelling [Unknown]
  - Swelling face [Not Recovered/Not Resolved]
  - Breast swelling [Not Recovered/Not Resolved]

NARRATIVE: CASE EVENT DATE: 20181013
